FAERS Safety Report 7610807-5 (Version None)
Quarter: 2011Q3

REPORT INFORMATION
  Report Type: 
  Country: None (occurrence: None)
  Receive Date: 20110707
  Receipt Date: 20110623
  Transmission Date: 20111222
  Serious: Yes (Hospitalization)
  Sender: FDA-Public Use
  Company Number: B0729168A

PATIENT
  Age: 37 Year
  Sex: Female

DRUGS (4)
  1. LAMIVUDINE [Suspect]
     Indication: ANTIRETROVIRAL THERAPY
  2. ZIDOVUDINE [Suspect]
     Indication: ANTIRETROVIRAL THERAPY
     Dates: start: 20101001
  3. CANCER CHEMOTHERAPY [Concomitant]
  4. NEVIRAPINE [Suspect]
     Indication: ANTIRETROVIRAL THERAPY

REACTIONS (19)
  - BACTERIAL INFECTION [None]
  - NIGHT SWEATS [None]
  - DECREASED APPETITE [None]
  - MYALGIA [None]
  - BACTERIAL TEST POSITIVE [None]
  - MYCOBACTERIUM TEST POSITIVE [None]
  - HEART RATE INCREASED [None]
  - RED BLOOD CELL SEDIMENTATION RATE INCREASED [None]
  - MALAISE [None]
  - NECK MASS [None]
  - IMMUNE RECONSTITUTION SYNDROME [None]
  - PYREXIA [None]
  - DYSPHAGIA [None]
  - THYROID MASS [None]
  - TEMPERATURE INTOLERANCE [None]
  - MEAN CELL VOLUME INCREASED [None]
  - TRI-IODOTHYRONINE FREE INCREASED [None]
  - DYSPHONIA [None]
  - THYROID GLAND ABSCESS [None]
